FAERS Safety Report 8771877 (Version 1)
Quarter: 2012Q4

REPORT INFORMATION
  Report Type: 
  Country: US (occurrence: US)
  Receive Date: 20120906
  Receipt Date: 20120906
  Transmission Date: 20130627
  Serious: Yes (Other)
  Sender: FDA-Public Use
  Company Number: US-PURDUE-USA-2012-0092297

PATIENT
  Sex: Female

DRUGS (1)
  1. INTERMEZZO [Suspect]
     Indication: PRODUCT USED FOR UNKNOWN INDICATION
     Dosage: 1.75 mg, hs
     Route: 060

REACTIONS (2)
  - Loss of consciousness [Recovered/Resolved]
  - Memory impairment [Unknown]
